FAERS Safety Report 4823005-5 (Version None)
Quarter: 2005Q4

REPORT INFORMATION
  Report Type: 
  Country: None (occurrence: None)
  Receive Date: 20051108
  Receipt Date: 20051108
  Transmission Date: 20060501
  Serious: Yes (Death, Hospitalization)
  Sender: FDA-Public Use
  Company Number: None

PATIENT
  Sex: Male
  Weight: 59.6 kg

DRUGS (9)
  1. DAUNOMYCIN [Suspect]
     Indication: ACUTE LYMPHOCYTIC LEUKAEMIA
     Dosage: SEE IMAGE
     Route: 042
     Dates: start: 20050927, end: 20051018
  2. VINCRISTINE SULFATE [Suspect]
     Dosage: SEE IMAGE
     Dates: end: 20051018
  3. PREDNISONE [Suspect]
     Dosage: SEE IMAGE
     Route: 048
     Dates: end: 20051018
  4. ELSPAR [Suspect]
     Dosage: SEE IMAGE
     Route: 042
     Dates: end: 20051018
  5. METHOTREXATE [Suspect]
     Dosage: SEE IMAGE
     Route: 037
  6. BACTRIM [Concomitant]
  7. TEQUIN [Concomitant]
  8. ZITHROMAX [Concomitant]
  9. CEFEPRIME [Concomitant]

REACTIONS (14)
  - ABDOMINAL PAIN [None]
  - CONSTIPATION [None]
  - FEBRILE NEUTROPENIA [None]
  - HERPES SIMPLEX [None]
  - LOSS OF CONSCIOUSNESS [None]
  - LUNG CONSOLIDATION [None]
  - MOUTH ULCERATION [None]
  - PAIN [None]
  - PERIVASCULAR DERMATITIS [None]
  - PNEUMONIA ASPERGILLUS [None]
  - PURPURA [None]
  - PYREXIA [None]
  - SPLENOMEGALY [None]
  - THROMBOCYTOPENIA [None]
